FAERS Safety Report 9353191 (Version 2)
Quarter: 2013Q3

REPORT INFORMATION
  Report Type: Spontaneous
  Country: US (occurrence: US)
  Receive Date: 20130618
  Receipt Date: 20130705
  Transmission Date: 20140515
  Serious: Yes (Other)
  Sender: FDA-Public Use
  Company Number: US-PFIZER INC-2013159650

PATIENT
  Age: 53 Year
  Sex: Female

DRUGS (2)
  1. SUTENT [Suspect]
     Indication: DESMOPLASTIC SMALL ROUND CELL TUMOUR
     Dosage: 37.5 MG, CYCLIC (1X/DAY)
  2. LORAZEPAM [Concomitant]
     Dosage: UNK

REACTIONS (15)
  - Off label use [Unknown]
  - Haemorrhage [Unknown]
  - Dysgeusia [Unknown]
  - Decreased appetite [Unknown]
  - Weight decreased [Unknown]
  - Fatigue [Not Recovered/Not Resolved]
  - Glossodynia [Unknown]
  - Pain in extremity [Unknown]
  - Arthralgia [Unknown]
  - Nausea [Unknown]
  - Dyspepsia [Unknown]
  - Dyspepsia [Unknown]
  - Skin discolouration [Recovering/Resolving]
  - Platelet count decreased [Unknown]
  - Mouth ulceration [Recovered/Resolved]
